FAERS Safety Report 6944452-1 (Version None)
Quarter: 2010Q3

REPORT INFORMATION
  Report Type: 
  Country: None (occurrence: None)
  Receive Date: 20100827
  Receipt Date: 20100819
  Transmission Date: 20110219
  Serious: Yes (Other)
  Sender: FDA-Public Use
  Company Number: US-PFIZER INC-2010088737

PATIENT
  Sex: Female
  Weight: 73.923 kg

DRUGS (14)
  1. LIPITOR [Suspect]
     Indication: CARDIAC DISORDER
     Dosage: 10 MG, DAILY
     Route: 048
     Dates: start: 20050101
  2. LIPITOR [Suspect]
     Indication: BLOOD CHOLESTEROL INCREASED
  3. SIMVASTATIN [Suspect]
     Dosage: 20 MG, DAILY
  4. ATENOLOL [Suspect]
     Indication: HYPERTENSION
     Dosage: 50 MG, DAILY
  5. LISINOPRIL [Concomitant]
     Indication: HYPERTENSION
     Dosage: UNK
  6. LISINOPRIL [Concomitant]
     Dosage: 20MG, DAILY
  7. NIASPAN [Concomitant]
     Dosage: 1000MG, DAILY
  8. NITROGLYCERIN [Concomitant]
     Dosage: 0.4 MG, AS NEEDED
     Route: 060
  9. COENZYME Q10 [Concomitant]
     Dosage: 75 MG, TWO TABLETS ONCE DAILY
  10. ACETYLSALICYLIC ACID [Concomitant]
     Dosage: 162.5 MG, 2X/DAY
  11. CALCIUM [Concomitant]
     Dosage: 500 MG, 2X/DAY
  12. MAGNESIUM [Concomitant]
     Dosage: 250 MG, 2X/DAY
  13. OXYCODONE [Concomitant]
     Dosage: 325 MG, UNK
  14. MULTI-VITAMINS [Concomitant]
     Dosage: UNK, 1 1/2 DAILY

REACTIONS (16)
  - ABDOMINAL DISCOMFORT [None]
  - BLOOD CHLORIDE DECREASED [None]
  - BLOOD GLUCOSE INCREASED [None]
  - BLOOD OSMOLARITY DECREASED [None]
  - BLOOD PRESSURE ABNORMAL [None]
  - BLOOD SODIUM DECREASED [None]
  - BLOOD TRIGLYCERIDES INCREASED [None]
  - BODY HEIGHT INCREASED [None]
  - DECREASED APPETITE [None]
  - HIGH DENSITY LIPOPROTEIN DECREASED [None]
  - MUSCLE SPASMS [None]
  - MYALGIA [None]
  - PERIPHERAL COLDNESS [None]
  - THYROID NEOPLASM [None]
  - WEIGHT DECREASED [None]
  - WEIGHT INCREASED [None]
